FAERS Safety Report 24230491 (Version 1)
Quarter: 2024Q3

REPORT INFORMATION
  Report Type: Spontaneous
  Country: DE (occurrence: DE)
  Receive Date: 20240821
  Receipt Date: 20240821
  Transmission Date: 20241016
  Serious: Yes (Other)
  Sender: ROCHE
  Company Number: None

PATIENT
  Age: 42 Year
  Sex: Female
  Weight: 76 kg

DRUGS (3)
  1. XOLAIR [Suspect]
     Active Substance: OMALIZUMAB
     Indication: Asthma
     Route: 050
     Dates: start: 202201, end: 20220801
  2. EBASTINE [Suspect]
     Active Substance: EBASTINE
     Indication: Asthma
     Route: 050
     Dates: start: 202201, end: 20220801
  3. IVABRADINA [IVABRADINE] [Concomitant]
     Indication: Heart rate increased
     Route: 050
     Dates: start: 20220119, end: 20220801

REACTIONS (8)
  - Sinus tachycardia [Recovering/Resolving]
  - Urticaria [Recovering/Resolving]
  - Disturbance in attention [Recovering/Resolving]
  - Asthenia [Recovering/Resolving]
  - Palpitations [Recovering/Resolving]
  - Tachycardia [Recovering/Resolving]
  - Exercise tolerance decreased [Recovering/Resolving]
  - Nervous system disorder [Recovering/Resolving]

NARRATIVE: CASE EVENT DATE: 20220103
